FAERS Safety Report 7706705-9 (Version None)
Quarter: 2011Q3

REPORT INFORMATION
  Report Type: 
  Country: None (occurrence: None)
  Receive Date: 20110824
  Receipt Date: 20110818
  Transmission Date: 20111222
  Serious: Yes (Life-Threatening)
  Sender: FDA-Public Use
  Company Number: GB-TEVA-294767ISR

PATIENT
  Age: 75 Year
  Sex: Female

DRUGS (2)
  1. FENTANYL [Interacting]
     Indication: PAIN
     Route: 062
     Dates: end: 20110501
  2. CLARITHROMYCIN [Suspect]
     Indication: LOWER RESPIRATORY TRACT INFECTION
     Dosage: 1000 MILLIGRAM;
     Route: 048
     Dates: start: 20110501, end: 20110501

REACTIONS (2)
  - RESPIRATORY ARREST [None]
  - DRUG INTERACTION [None]
